FAERS Safety Report 24012872 (Version 1)
Quarter: 2024Q2

REPORT INFORMATION
  Report Type: Spontaneous
  Country: US (occurrence: None)
  Receive Date: 20240626
  Receipt Date: 20240626
  Transmission Date: 20240717
  Serious: No
  Sender: FDA-Public Use
  Company Number: 2024A144672

PATIENT
  Age: 76 Year
  Sex: Male
  Weight: 93 kg

DRUGS (3)
  1. FARXIGA [Suspect]
     Active Substance: DAPAGLIFLOZIN PROPANEDIOL
     Indication: Glycosylated haemoglobin increased
     Route: 048
  2. EZETIMIBE [Suspect]
     Active Substance: EZETIMIBE
  3. LOSARTAN [Suspect]
     Active Substance: LOSARTAN

REACTIONS (1)
  - Myalgia [Unknown]

NARRATIVE: CASE EVENT DATE: 20240120
